FAERS Safety Report 19791261 (Version 5)
Quarter: 2023Q1

REPORT INFORMATION
  Report Type: Other
  Country: DE (occurrence: None)
  Receive Date: 20210906
  Receipt Date: 20230118
  Transmission Date: 20230418
  Serious: Yes (Other)
  Sender: FDA-Public Use
  Company Number: DE-ROCHE-2266873

PATIENT
  Age: 50 Year
  Sex: Female

DRUGS (12)
  1. OCREVUS [Suspect]
     Active Substance: OCRELIZUMAB
     Indication: Relapsing-remitting multiple sclerosis
     Dosage: DATE OF TREATMENT 2/FEB/2022
     Route: 042
     Dates: start: 20180717
  2. OCREVUS [Suspect]
     Active Substance: OCRELIZUMAB
     Route: 042
     Dates: start: 20200728
  3. OCREVUS [Suspect]
     Active Substance: OCRELIZUMAB
     Route: 042
     Dates: start: 20210203
  4. OCREVUS [Suspect]
     Active Substance: OCRELIZUMAB
     Route: 042
     Dates: start: 2021
  5. COMIRNATY [Suspect]
     Active Substance: TOZINAMERAN
     Indication: COVID-19
     Route: 065
     Dates: start: 20210414
  6. COMIRNATY [Suspect]
     Active Substance: TOZINAMERAN
     Route: 065
     Dates: start: 20210519
  7. LEVOTHYROXINE SODIUM [Concomitant]
     Active Substance: LEVOTHYROXINE SODIUM
  8. CANDESARTAN [Concomitant]
     Active Substance: CANDESARTAN
     Dosage: 16/12.5, 8/6.25 AND 3/6.25.
  9. MIRABEGRON [Concomitant]
     Active Substance: MIRABEGRON
  10. BLACK CUMIN [Concomitant]
  11. HYDROCHLOROTHIAZIDE [Concomitant]
     Active Substance: HYDROCHLOROTHIAZIDE
  12. METAMIZOLE [Concomitant]
     Active Substance: METAMIZOLE

REACTIONS (25)
  - Purulence [Not Recovered/Not Resolved]
  - Fatigue [Recovered/Resolved]
  - Oedema [Recovering/Resolving]
  - Hypertension [Recovered/Resolved]
  - Lip disorder [Recovering/Resolving]
  - Glossodynia [Recovered/Resolved]
  - Gingivitis [Recovered/Resolved]
  - Back pain [Recovered/Resolved]
  - Neck pain [Recovered/Resolved]
  - Asthenia [Recovering/Resolving]
  - Therapeutic product effect decreased [Unknown]
  - Fatigue [Recovered/Resolved]
  - Myalgia [Recovered/Resolved]
  - Headache [Recovered/Resolved]
  - Aphasia [Recovering/Resolving]
  - Slow speech [Recovering/Resolving]
  - Noninfective gingivitis [Not Recovered/Not Resolved]
  - Dyspepsia [Recovered/Resolved]
  - Demyelination [Not Recovered/Not Resolved]
  - Balance disorder [Recovering/Resolving]
  - Pain in jaw [Recovered/Resolved]
  - Fatigue [Recovered/Resolved]
  - Constipation [Not Recovered/Not Resolved]
  - Abdominal pain upper [Not Recovered/Not Resolved]
  - C-reactive protein increased [Not Recovered/Not Resolved]

NARRATIVE: CASE EVENT DATE: 20190101
